FAERS Safety Report 6402067-8 (Version None)
Quarter: 2009Q4

REPORT INFORMATION
  Report Type: 
  Country: None (occurrence: None)
  Receive Date: 20091015
  Receipt Date: 20091003
  Transmission Date: 20100525
  Serious: Yes (Hospitalization)
  Sender: FDA-Public Use
  Company Number: US-PFIZER INC-2009277935

PATIENT
  Age: 70 Year
  Sex: Female
  Weight: 50.4 kg

DRUGS (1)
  1. SUNITINIB MALATE [Suspect]
     Indication: ENDOMETRIAL CANCER
     Dosage: 50 MG DAILY, 4 WEEKS IN A 6 WEEKS CYCLE
     Route: 048
     Dates: start: 20090706, end: 20090912

REACTIONS (2)
  - FATIGUE [None]
  - NEUROPATHY PERIPHERAL [None]
